FAERS Safety Report 26194671 (Version 1)
Quarter: 2025Q4

REPORT INFORMATION
  Report Type: Spontaneous
  Country: US (occurrence: US)
  Receive Date: 20251224
  Receipt Date: 20251224
  Transmission Date: 20260117
  Serious: Yes (Hospitalization, Other)
  Sender: GLENMARK
  Company Number: US-MLMSERVICE-20251204-PI740162-00232-1

PATIENT
  Age: 65 Year
  Sex: Female

DRUGS (5)
  1. TACROLIMUS [Suspect]
     Active Substance: TACROLIMUS
     Indication: Immunosuppressant drug therapy
     Dosage: UNK (LEVELS 6-8 NG/ML)
     Route: 065
     Dates: start: 2016
  2. MYFORTIC [Suspect]
     Active Substance: MYCOPHENOLATE SODIUM
     Indication: Immunosuppressant drug therapy
     Dosage: 180 MILLIGRAM, BID
     Route: 065
     Dates: start: 2016
  3. MYFORTIC [Suspect]
     Active Substance: MYCOPHENOLATE SODIUM
     Dosage: 180 MILLIGRAM, QD
     Route: 065
     Dates: start: 2016
  4. PREDNISONE [Suspect]
     Active Substance: PREDNISONE
     Indication: Immunosuppressant drug therapy
     Dosage: 5 MILLIGRAM
     Route: 065
     Dates: start: 2016
  5. THYMOGLOBULIN [Suspect]
     Active Substance: LAPINE T-LYMPHOCYTE IMMUNE GLOBULIN
     Indication: Immunosuppressant drug therapy
     Dosage: UNK
     Route: 065
     Dates: start: 2016, end: 2016

REACTIONS (3)
  - Glomerulonephritis membranoproliferative [Recovering/Resolving]
  - Disease recurrence [Recovering/Resolving]
  - Norovirus infection [Recovering/Resolving]

NARRATIVE: CASE EVENT DATE: 20210101
